FAERS Safety Report 25128162 (Version 1)
Quarter: 2025Q1

REPORT INFORMATION
  Report Type: Spontaneous
  Country: FR (occurrence: FR)
  Receive Date: 20250327
  Receipt Date: 20250327
  Transmission Date: 20250409
  Serious: Yes (Hospitalization)
  Sender: AUROBINDO
  Company Number: FR-AFSSAPS-MP2025000259

PATIENT
  Age: 12 Year
  Sex: Female
  Weight: 125.5 kg

DRUGS (4)
  1. IBUPROFEN [Suspect]
     Active Substance: IBUPROFEN
     Indication: Idiopathic intracranial hypertension
     Dosage: 400 MILLIGRAM, FOUR TIMES/DAY
     Route: 048
     Dates: start: 20240129
  2. DIAMOX SEQUELS [Suspect]
     Active Substance: ACETAZOLAMIDE
     Indication: Idiopathic intracranial hypertension
     Dosage: 1250 MILLIGRAM, ONCE A DAY
     Route: 048
     Dates: start: 20240129
  3. POTASSIUM CHLORIDE [Concomitant]
     Active Substance: POTASSIUM CHLORIDE
     Indication: Idiopathic intracranial hypertension
     Dosage: 1200 MILLIGRAM, ONCE A DAY
     Route: 048
     Dates: start: 20240129
  4. SODIUM BICARBONATE [Concomitant]
     Active Substance: SODIUM BICARBONATE
     Indication: Idiopathic intracranial hypertension
     Dosage: 2500 MILLIGRAM, ONCE A DAY
     Route: 048
     Dates: start: 20240308

REACTIONS (1)
  - Menometrorrhagia [Not Recovered/Not Resolved]

NARRATIVE: CASE EVENT DATE: 20241207
